FAERS Safety Report 25089928 (Version 1)
Quarter: 2025Q1

REPORT INFORMATION
  Report Type: Spontaneous
  Country: US (occurrence: None)
  Receive Date: 20250317
  Receipt Date: 20250317
  Transmission Date: 20250409
  Serious: Yes (Life-Threatening, Hospitalization)
  Sender: FDA-CTU
  Company Number: None

PATIENT
  Age: 43 Year
  Sex: Male
  Weight: 131.5 kg

DRUGS (1)
  1. RITUXIMAB [Suspect]
     Active Substance: RITUXIMAB
     Indication: Dorsal root ganglionopathy
     Dates: start: 20250221, end: 20250306

REACTIONS (7)
  - Urticaria [None]
  - Dyspnoea [None]
  - Chest pain [None]
  - Infusion related reaction [None]
  - Nausea [None]
  - Tachycardia [None]
  - Hypotension [None]

NARRATIVE: CASE EVENT DATE: 20250306
